FAERS Safety Report 7743301-1 (Version None)
Quarter: 2011Q3

REPORT INFORMATION
  Report Type: 
  Country: None (occurrence: None)
  Receive Date: 20110909
  Receipt Date: 20110909
  Transmission Date: 20111222
  Serious: Yes (Life-Threatening, Hospitalization)
  Sender: FDA-Public Use
  Company Number: None

PATIENT
  Sex: Male
  Weight: 97.0698 kg

DRUGS (1)
  1. PRADAXA [Suspect]
     Dosage: 1 A DAY
     Dates: start: 20110203, end: 20110404

REACTIONS (2)
  - GASTRIC HAEMORRHAGE [None]
  - EYE HAEMORRHAGE [None]
